FAERS Safety Report 5893423-5 (Version None)
Quarter: 2008Q3

REPORT INFORMATION
  Report Type: 
  Country: None (occurrence: None)
  Receive Date: 20080923
  Receipt Date: 20080915
  Transmission Date: 20090109
  Serious: Yes (Other)
  Sender: FDA-Public Use
  Company Number: GB-PURDUE-GBR_2008_0004438

PATIENT
  Sex: Female

DRUGS (5)
  1. OXYCONTIN [Suspect]
     Indication: DRUG USE FOR UNKNOWN INDICATION
     Dosage: 40 MG, BID
     Route: 065
  2. OXYNORM CAPSULES 5 MG [Suspect]
     Indication: DRUG USE FOR UNKNOWN INDICATION
     Dosage: 10 MG, BID PRN
     Route: 065
  3. TRAMADOL HCL [Concomitant]
     Dosage: 100 MG, TID
     Route: 065
  4. ACETAMINOPHEN W/ CODEINE [Concomitant]
     Dosage: 30/500
     Route: 065
  5. AMITRIPTYLINE HCL [Concomitant]
     Dosage: 25 MG, NOCTE
     Route: 065

REACTIONS (2)
  - DEAFNESS UNILATERAL [None]
  - DYSACUSIS [None]
